FAERS Safety Report 5410474-5 (Version None)
Quarter: 2007Q3

REPORT INFORMATION
  Report Type: 
  Country: None (occurrence: None)
  Receive Date: 20070810
  Receipt Date: 20070111
  Transmission Date: 20080115
  Serious: No
  Sender: FDA-Public Use
  Company Number: A0634466A

PATIENT
  Age: 37 Year
  Sex: Female

DRUGS (2)
  1. PAXIL [Suspect]
     Indication: POSTPARTUM DEPRESSION
     Dosage: 30MG PER DAY
     Route: 048
  2. NO CONCURRENT MEDICATION [Concomitant]

REACTIONS (2)
  - FLASHBACK [None]
  - LETHARGY [None]
